FAERS Safety Report 6595329-5 (Version None)
Quarter: 2010Q1

REPORT INFORMATION
  Report Type: 
  Country: None (occurrence: None)
  Receive Date: 20100219
  Receipt Date: 20100219
  Transmission Date: 20100710
  Serious: Yes (Hospitalization)
  Sender: FDA-Public Use
  Company Number: None

PATIENT
  Age: 59 Year
  Sex: Female

DRUGS (10)
  1. WARFARIN SODIUM [Suspect]
     Indication: DEEP VEIN THROMBOSIS
     Dosage: 6 MG AT BEDTIME PO
     Route: 048
  2. ASPIRIN [Concomitant]
  3. DILANTIN [Concomitant]
  4. VASOTEC [Concomitant]
  5. LOPRESSOR [Concomitant]
  6. OSCAL [Concomitant]
  7. DEPAKENE [Concomitant]
  8. HYDROCHLOROTHIAZIDE [Concomitant]
  9. TRAZODONE HCL [Concomitant]
  10. COLACE [Concomitant]

REACTIONS (2)
  - HAEMATEMESIS [None]
  - INTERNATIONAL NORMALISED RATIO INCREASED [None]
